FAERS Safety Report 8428064 (Version 3)
Quarter: 2012Q4

REPORT INFORMATION
  Report Type: Report from Study
  Country: JP (occurrence: JP)
  Receive Date: 20120227
  Receipt Date: 20120921
  Transmission Date: 20130627
  Serious: Yes (Death)
  Sender: FDA-Public Use
  Company Number: JP-MILLENNIUM PHARMACEUTICALS, INC.-2012-00881

PATIENT

DRUGS (3)
  1. VELCADE [Suspect]
     Indication: MULTIPLE MYELOMA
     Dosage: 1.3 mg/m2, 2/week
     Route: 042
     Dates: start: 20120116, end: 20120119
  2. MELPHALAN [Suspect]
     Indication: MULTIPLE MYELOMA
     Dosage: 10 mg, UNK
     Route: 048
     Dates: start: 20120116, end: 20120119
  3. PREDNISOLONE [Concomitant]
     Indication: MULTIPLE MYELOMA
     Dosage: 5 mg, UNK
     Route: 048
     Dates: start: 20120116, end: 20120119

REACTIONS (2)
  - Cerebrovascular disorder [Fatal]
  - Cerebral infarction [Fatal]
